FAERS Safety Report 12429471 (Version 1)
Quarter: 2016Q2

REPORT INFORMATION
  Report Type: Spontaneous
  Country: US (occurrence: US)
  Receive Date: 20160602
  Receipt Date: 20160602
  Transmission Date: 20160815
  Serious: Yes (Other)
  Sender: FDA-Public Use
  Company Number: US-MDT-ADR-2016-00303

PATIENT
  Age: 19 Year
  Sex: Male

DRUGS (1)
  1. LIORESAL [Suspect]
     Active Substance: BACLOFEN
     Route: 037

REACTIONS (5)
  - Self injurious behaviour [Unknown]
  - Skin exfoliation [Unknown]
  - Wound dehiscence [Unknown]
  - Pocket erosion [Unknown]
  - Scratch [Unknown]
